FAERS Safety Report 6276975-5 (Version None)
Quarter: 2009Q3

REPORT INFORMATION
  Report Type: 
  Country: None (occurrence: None)
  Receive Date: 20090722
  Receipt Date: 20081107
  Transmission Date: 20100115
  Serious: Yes (Hospitalization)
  Sender: FDA-Public Use
  Company Number: US-BRISTOL-MYERS SQUIBB COMPANY-14398853

PATIENT
  Age: 60 Year
  Sex: Female

DRUGS (6)
  1. COUMADIN [Suspect]
     Dates: end: 20080924
  2. LOVENOX [Suspect]
     Indication: ANTICOAGULANT THERAPY
     Dates: start: 20080924, end: 20080928
  3. DIGOXIN [Concomitant]
  4. RENAGEL [Concomitant]
  5. PRILOSEC [Concomitant]
  6. INSULIN [Concomitant]

REACTIONS (1)
  - POST PROCEDURAL HAEMORRHAGE [None]
